FAERS Safety Report 20590536 (Version 2)
Quarter: 2022Q1

REPORT INFORMATION
  Report Type: Spontaneous
  Country: JP (occurrence: JP)
  Receive Date: 20220314
  Receipt Date: 20220315
  Transmission Date: 20220424
  Serious: No
  Sender: FDA-Public Use
  Company Number: JP-PFIZER INC-202101216623

PATIENT
  Sex: Female

DRUGS (1)
  1. VFEND [Suspect]
     Active Substance: VORICONAZOLE
     Dosage: UNK
     Route: 048

REACTIONS (2)
  - Eye disorder [Unknown]
  - Hepatic function abnormal [Unknown]
